FAERS Safety Report 12233813 (Version 1)
Quarter: 2016Q2

REPORT INFORMATION
  Report Type: Spontaneous
  Country: US (occurrence: US)
  Receive Date: 20160404
  Receipt Date: 20160404
  Transmission Date: 20160815
  Serious: Yes (Disabling)
  Sender: FDA-Public Use
  Company Number: US-PROCTER_AND_GAMBLE-GS16039073

PATIENT
  Age: 37 Year
  Sex: Male

DRUGS (1)
  1. OLD SPICE HIGH ENDURANCE PURE SPORT (ALUMINUM ZIRCONIUM TRICHLOROHYDREX GLY) [Suspect]
     Active Substance: ALUMINUM ZIRCONIUM TRICHLOROHYDREX GLY
     Dosage: 2 SWIPES UNDER EACH ARM, 2/DAY
     Route: 061
     Dates: end: 201509

REACTIONS (5)
  - Secretion discharge [Recovered/Resolved]
  - Skin burning sensation [Recovered/Resolved]
  - Axillary pain [Recovered/Resolved]
  - Rash erythematous [Recovered/Resolved]
  - Scab [Recovered/Resolved]

NARRATIVE: CASE EVENT DATE: 201506
